FAERS Safety Report 5295889-0 (Version None)
Quarter: 2007Q2

REPORT INFORMATION
  Report Type: 
  Country: None (occurrence: None)
  Receive Date: 20070413
  Receipt Date: 20070402
  Transmission Date: 20071010
  Serious: Yes (Hospitalization)
  Sender: FDA-Public Use
  Company Number: PHBS2007JP05681

PATIENT
  Age: 64 Year
  Sex: Female

DRUGS (2)
  1. CYCLOSPORINE [Suspect]
     Indication: NEPHROTIC SYNDROME
     Route: 048
  2. PREDNISOLONE [Suspect]
     Indication: NEPHROTIC SYNDROME
     Route: 048

REACTIONS (6)
  - CRYPTOCOCCOSIS [None]
  - HEPATITIS B [None]
  - NECROSIS [None]
  - SKIN DISORDER [None]
  - SKIN WARM [None]
  - SWELLING [None]
